FAERS Safety Report 4661258-7 (Version None)
Quarter: 2005Q2

REPORT INFORMATION
  Report Type: 
  Country: None (occurrence: None)
  Receive Date: 20050511
  Receipt Date: 20050429
  Transmission Date: 20051028
  Serious: Yes (Hospitalization)
  Sender: FDA-Public Use
  Company Number: CA-2005-003591

PATIENT
  Age: 55 Year
  Sex: Female

DRUGS (7)
  1. BETASERON [Suspect]
     Indication: SECONDARY PROGRESSIVE MULTIPLE SCLEROSIS
     Dosage: 8 MIU, EVERY 2D, SUBCUTANEOUS
     Route: 058
     Dates: start: 20030605
  2. SYNTHROID [Concomitant]
  3. CALCIUM                  (CALCIUM [Concomitant]
  4. LITHIUM CARBONATE [Concomitant]
  5. LIPIDIL [Concomitant]
  6. ACTONEL [Concomitant]
  7. ACETAMINOPHEN [Concomitant]

REACTIONS (8)
  - ANXIETY [None]
  - ASTHENIA [None]
  - BLOOD PRESSURE DECREASED [None]
  - DISEASE RECURRENCE [None]
  - FACIAL NEURALGIA [None]
  - FACIAL PAIN [None]
  - FATIGUE [None]
  - MUSCLE SPASMS [None]
